FAERS Safety Report 5745665-7 (Version None)
Quarter: 2008Q2

REPORT INFORMATION
  Report Type: 
  Country: None (occurrence: None)
  Receive Date: 20080521
  Receipt Date: 20080519
  Transmission Date: 20081010
  Serious: Yes (Hospitalization)
  Sender: FDA-Public Use
  Company Number: IT-ABBOTT-08P-083-0449356-00

PATIENT
  Sex: Male

DRUGS (2)
  1. KLACID [Suspect]
     Indication: BRONCHITIS
     Route: 048
     Dates: start: 20080407, end: 20080411
  2. LEVORUSS [Concomitant]
     Indication: DRUG USE FOR UNKNOWN INDICATION
     Route: 048

REACTIONS (2)
  - ABDOMINAL PAIN UPPER [None]
  - JAUNDICE [None]
